FAERS Safety Report 21976968 (Version 1)
Quarter: 2023Q1

REPORT INFORMATION
  Report Type: Other
  Country: DE (occurrence: DE)
  Receive Date: 20230210
  Receipt Date: 20230210
  Transmission Date: 20230417
  Serious: Yes (Death)
  Sender: FDA-Public Use
  Company Number: DE-MACLEODS PHARMA UK LTD-MAC2023039712

PATIENT

DRUGS (7)
  1. ARIPIPRAZOLE [Interacting]
     Active Substance: ARIPIPRAZOLE
     Indication: Intellectual disability
     Dosage: UNK
     Route: 065
  2. ARIPIPRAZOLE [Interacting]
     Active Substance: ARIPIPRAZOLE
     Indication: Behaviour disorder
  3. ARIPIPRAZOLE [Interacting]
     Active Substance: ARIPIPRAZOLE
     Indication: Emotional disorder
  4. ARIPIPRAZOLE [Interacting]
     Active Substance: ARIPIPRAZOLE
     Indication: Antipsychotic therapy
  5. GUANFACINE [Interacting]
     Active Substance: GUANFACINE
     Indication: Emotional disorder
     Dosage: UNK
     Route: 065
  6. GUANFACINE [Interacting]
     Active Substance: GUANFACINE
     Indication: Behaviour disorder
  7. GUANFACINE [Interacting]
     Active Substance: GUANFACINE
     Indication: Intellectual disability

REACTIONS (2)
  - Electrocardiogram QT prolonged [Fatal]
  - Drug interaction [Fatal]
